FAERS Safety Report 16731399 (Version 1)
Quarter: 2019Q3

REPORT INFORMATION
  Report Type: Spontaneous
  Country: SK (occurrence: SK)
  Receive Date: 20190822
  Receipt Date: 20190822
  Transmission Date: 20191005
  Serious: Yes (Hospitalization)
  Sender: FDA-Public Use
  Company Number: SK-BAUSCH-BL-2019-023150

PATIENT
  Age: 45 Year
  Sex: Female

DRUGS (3)
  1. DOXYCYCLIN [Suspect]
     Active Substance: DOXYCYCLINE
     Indication: HELICOBACTER INFECTION
     Route: 065
  2. ENTIZOL [Suspect]
     Active Substance: METRONIDAZOLE
     Indication: HELICOBACTER INFECTION
     Route: 065
  3. HELICID [Suspect]
     Active Substance: OMEPRAZOLE
     Indication: HELICOBACTER INFECTION
     Route: 065

REACTIONS (4)
  - Face oedema [Recovered/Resolved]
  - Dyspnoea [Recovered/Resolved]
  - Pruritus generalised [Recovered/Resolved]
  - Urticaria [Recovered/Resolved]
